FAERS Safety Report 8811285 (Version 2)
Quarter: 2012Q4

REPORT INFORMATION
  Report Type: 
  Country: US (occurrence: US)
  Receive Date: 20120927
  Receipt Date: 20121112
  Transmission Date: 20130627
  Serious: Yes (Other)
  Sender: FDA-Public Use
  Company Number: US-FRI-1000038709

PATIENT
  Age: 75 Year
  Sex: Female

DRUGS (8)
  1. VIIBRYD [Suspect]
     Indication: DEPRESSION
     Dosage: 10 mg
     Route: 048
     Dates: start: 201209, end: 2012
  2. VIIBRYD [Suspect]
     Route: 048
     Dates: start: 2012, end: 2012
  3. XANAX [Concomitant]
     Indication: ANXIETY
     Dates: start: 2006
  4. SIMVASTATIN [Concomitant]
     Indication: BLOOD CHOLESTEROL INCREASED
  5. BENAZEPRIL [Concomitant]
     Indication: HYPERTENSION
  6. ENALAPRIL [Concomitant]
     Indication: HYPERTENSION
  7. DOXEPIN [Concomitant]
     Dates: start: 2012
  8. PAIN PILL (NOS) [Concomitant]
     Indication: BACK PAIN
     Dates: start: 2012

REACTIONS (4)
  - Suicidal ideation [Recovering/Resolving]
  - Anxiety [Recovering/Resolving]
  - Insomnia [Recovering/Resolving]
  - Crying [Recovered/Resolved]
